FAERS Safety Report 19233613 (Version 4)
Quarter: 2021Q3

REPORT INFORMATION
  Report Type: Report from Study
  Country: US (occurrence: US)
  Receive Date: 20210507
  Receipt Date: 20210922
  Transmission Date: 20211014
  Serious: Yes (Other)
  Sender: FDA-Public Use
  Company Number: NVSC2021US096218

PATIENT
  Age: 40 Year
  Sex: Female

DRUGS (1)
  1. KESIMPTA [Suspect]
     Active Substance: OFATUMUMAB
     Indication: RELAPSING-REMITTING MULTIPLE SCLEROSIS
     Dosage: 20 MG, QMO (BENEATH THE SKIN? USUALLY VIA INJECTION)
     Route: 058
     Dates: start: 20200105

REACTIONS (10)
  - Multiple sclerosis relapse [Recovering/Resolving]
  - Sensory disturbance [Recovering/Resolving]
  - Insomnia [Not Recovered/Not Resolved]
  - Optic neuritis [Recovering/Resolving]
  - Skin burning sensation [Not Recovered/Not Resolved]
  - Central vision loss [Recovering/Resolving]
  - Muscle spasticity [Not Recovered/Not Resolved]
  - Alopecia [Not Recovered/Not Resolved]
  - Incorrect dose administered [Recovering/Resolving]
  - Pruritus [Not Recovered/Not Resolved]

NARRATIVE: CASE EVENT DATE: 20201201
